FAERS Safety Report 18930352 (Version 1)
Quarter: 2021Q1

REPORT INFORMATION
  Report Type: Spontaneous
  Country: KR (occurrence: KR)
  Receive Date: 20210223
  Receipt Date: 20210223
  Transmission Date: 20210420
  Serious: Yes (Death)
  Sender: FDA-Public Use
  Company Number: KR-JNJFOC-20210233294

PATIENT
  Age: 61 Year
  Sex: Male

DRUGS (2)
  1. TRACLEER [Suspect]
     Active Substance: BOSENTAN
     Indication: HEART DISEASE CONGENITAL
     Route: 048
  2. TRACLEER [Suspect]
     Active Substance: BOSENTAN
     Indication: RIGHT-TO-LEFT CARDIAC SHUNT

REACTIONS (1)
  - Death [Fatal]
